FAERS Safety Report 9821167 (Version 1)
Quarter: 2014Q1

REPORT INFORMATION
  Report Type: Spontaneous
  Country: GB (occurrence: None)
  Receive Date: 20140114
  Receipt Date: 20140114
  Transmission Date: 20141002
  Serious: Yes (Hospitalization)
  Sender: FDA-Public Use
  Company Number: AUR-APL-2014-00227

PATIENT
  Age: 36 Year
  Sex: Female
  Weight: 55.33 kg

DRUGS (1)
  1. AMOXICILLIN+CLAVULANIC ACID (CLAVULANIC ACID, AMOXICILLIN) [Suspect]
     Indication: TOOTH EXTRACTION
     Dosage: (500 MG). ORAL
     Route: 048
     Dates: start: 20131216, end: 20131222

REACTIONS (8)
  - Diarrhoea [None]
  - Nausea [None]
  - Palpitations [None]
  - Dizziness [None]
  - Candida infection [None]
  - Lethargy [None]
  - Abdominal pain [None]
  - Malaise [None]
